FAERS Safety Report 7001884-3 (Version None)
Quarter: 2010Q3

REPORT INFORMATION
  Report Type: 
  Country: None (occurrence: None)
  Receive Date: 20100920
  Receipt Date: 20100914
  Transmission Date: 20110219
  Serious: Yes (Hospitalization)
  Sender: FDA-Public Use
  Company Number: FR-MERCK-1009FRA00049

PATIENT
  Age: 72 Year
  Sex: Male
  Weight: 67 kg

DRUGS (13)
  1. ISENTRESS [Suspect]
     Indication: HIV INFECTION
     Route: 048
     Dates: start: 20100713
  2. SOTALEX [Concomitant]
     Route: 048
     Dates: start: 20020730
  3. AMLODIPINE [Concomitant]
     Route: 048
     Dates: start: 20070511
  4. SEROPLEX [Concomitant]
     Route: 048
     Dates: start: 20091217
  5. PLAVIX [Concomitant]
     Route: 048
     Dates: start: 20090629
  6. CRESTOR [Concomitant]
     Route: 048
     Dates: start: 20090622
  7. RIVOTRIL [Concomitant]
     Route: 048
     Dates: start: 19990208
  8. TOPALGIC LP [Concomitant]
     Route: 048
     Dates: start: 20100614
  9. DEXERYL CREAM [Concomitant]
     Route: 061
     Dates: start: 20091217
  10. UVEDOSE [Concomitant]
     Route: 048
     Dates: start: 20100713
  11. OXAZEPAM [Concomitant]
     Route: 048
     Dates: start: 20091127
  12. CELSENTRI [Concomitant]
     Route: 048
     Dates: start: 20100713
  13. TRUVADA [Concomitant]
     Route: 048
     Dates: start: 20100713

REACTIONS (1)
  - CEREBROVASCULAR ACCIDENT [None]
